FAERS Safety Report 6376727 (Version 2)
Quarter: 2019Q1

REPORT INFORMATION
  Report Type: Spontaneous
  Country: FR (occurrence: FR)
  Receive Date: 20060719
  Receipt Date: 20190201
  Transmission Date: 20190418
  Serious: Yes (Hospitalization, Other)
  Sender: FDA-Public Use
  Company Number: FR-GILEAD-2006-0009851

PATIENT
  Age: 45 Year
  Sex: Male

DRUGS (5)
  1. TMC114 [Suspect]
     Active Substance: DARUNAVIR
     Indication: HIV INFECTION
     Dosage: 600 MG, QD
     Route: 048
     Dates: start: 20060306
  2. NORVIR [Suspect]
     Active Substance: RITONAVIR
     Indication: HIV INFECTION
     Dosage: 100 MG, QD
     Route: 048
     Dates: start: 20010611
  3. FUZEON [Suspect]
     Active Substance: ENFUVIRTIDE
     Indication: HIV INFECTION
     Dosage: 90 MG, QD
     Route: 058
     Dates: start: 20060306
  4. VIREAD [Suspect]
     Active Substance: TENOFOVIR DISOPROXIL FUMARATE
     Indication: HIV INFECTION
     Dosage: 300 MG, QD
     Route: 048
     Dates: start: 20050203
  5. VIDEX [Suspect]
     Active Substance: DIDANOSINE
     Indication: HIV INFECTION
     Dosage: 250 MG, QD
     Route: 048
     Dates: start: 20060306

REACTIONS (3)
  - Overdose [Unknown]
  - Lymphoma [Recovering/Resolving]
  - Drug ineffective [Recovered/Resolved]

NARRATIVE: CASE EVENT DATE: 20050203
